FAERS Safety Report 17463489 (Version 1)
Quarter: 2020Q1

REPORT INFORMATION
  Report Type: Spontaneous
  Country: ES (occurrence: ES)
  Receive Date: 20200226
  Receipt Date: 20200226
  Transmission Date: 20200409
  Serious: Yes (Hospitalization)
  Sender: FDA-Public Use
  Company Number: ES-MYLANLABS-2020M1020596

PATIENT
  Age: 33 Year
  Sex: Female

DRUGS (4)
  1. METAMIZOL                          /06276701/ [Suspect]
     Active Substance: METAMIZOLE
     Indication: PAIN
     Dosage: 2000 MILLIGRAM, Q8H
     Route: 042
     Dates: start: 20190314, end: 20190316
  2. LAMOTRIGINE. [Suspect]
     Active Substance: LAMOTRIGINE
     Indication: PRODUCT USED FOR UNKNOWN INDICATION
     Dosage: 25 MILLIGRAM, QD
     Route: 048
     Dates: start: 20190220, end: 20190305
  3. IBUPROFEN. [Suspect]
     Active Substance: IBUPROFEN
     Indication: PATELLA FRACTURE
     Dosage: 1-1-1
     Route: 048
     Dates: start: 20190307, end: 20190327
  4. LAMOTRIGINE. [Suspect]
     Active Substance: LAMOTRIGINE
     Dosage: 25 MG 1-0-1
     Route: 048
     Dates: start: 20190306, end: 20190316

REACTIONS (1)
  - Drug reaction with eosinophilia and systemic symptoms [Recovered/Resolved]

NARRATIVE: CASE EVENT DATE: 20190315
